FAERS Safety Report 9981136 (Version 1)
Quarter: 2014Q1

REPORT INFORMATION
  Report Type: Spontaneous
  Country: US (occurrence: None)
  Receive Date: 20140306
  Receipt Date: 20140306
  Transmission Date: 20141002
  Serious: Yes (Hospitalization, Other)
  Sender: FDA-Public Use
  Company Number: None

PATIENT
  Age: 4 Year
  Sex: Female
  Weight: 17.51 kg

DRUGS (2)
  1. TRILEPTAL [Suspect]
     Indication: EPILEPSY
     Dosage: BY MOUTH
     Route: 048
     Dates: start: 201209, end: 20131026
  2. TRILEPTAL [Suspect]
     Indication: COMPLEX PARTIAL SEIZURES
     Dosage: BY MOUTH
     Route: 048
     Dates: start: 201209, end: 20131026

REACTIONS (7)
  - Unresponsive to stimuli [None]
  - Apnoea [None]
  - Sleep disorder [None]
  - Blood pressure decreased [None]
  - Heart rate decreased [None]
  - Palpitations [None]
  - Blood pressure increased [None]
